FAERS Safety Report 24064346 (Version 1)
Quarter: 2024Q3

REPORT INFORMATION
  Report Type: Spontaneous
  Country: NL (occurrence: NL)
  Receive Date: 20240709
  Receipt Date: 20240709
  Transmission Date: 20241017
  Serious: Yes (Hospitalization, Other)
  Sender: TEVA
  Company Number: NL-TEVA-VS-3214894

PATIENT
  Age: 39 Year
  Sex: Male
  Weight: 65.9 kg

DRUGS (17)
  1. LITHIUM CARBONATE [Suspect]
     Active Substance: LITHIUM CARBONATE
     Indication: Schizoaffective disorder
     Dosage: AT BEDTIME
     Route: 065
     Dates: end: 202105
  2. HALOPERIDOL [Concomitant]
     Active Substance: HALOPERIDOL
     Indication: Schizoaffective disorder
     Route: 048
  3. HALOPERIDOL [Concomitant]
     Active Substance: HALOPERIDOL
     Indication: Schizoaffective disorder
     Route: 042
  4. ZUCLOPENTHIXOL [Suspect]
     Active Substance: ZUCLOPENTHIXOL
     Indication: Schizoaffective disorder
     Route: 065
  5. CLOZAPINE [Interacting]
     Active Substance: CLOZAPINE
     Indication: Schizoaffective disorder
     Dosage: RESUMED
     Route: 065
     Dates: start: 2019
  6. CLOZAPINE [Interacting]
     Active Substance: CLOZAPINE
     Indication: Schizoaffective disorder
     Route: 065
     Dates: start: 2005, end: 2018
  7. DROPERIDOL [Concomitant]
     Active Substance: DROPERIDOL
     Indication: Schizoaffective disorder
     Route: 065
  8. BISACODYL [Suspect]
     Active Substance: BISACODYL
     Indication: Constipation prophylaxis
     Route: 065
  9. MEMANTINE [Suspect]
     Active Substance: MEMANTINE
     Indication: Schizoaffective disorder
     Route: 065
  10. GLYCOPYRRONIUM [Concomitant]
     Active Substance: GLYCOPYRRONIUM
     Indication: Salivary hypersecretion
     Dosage: AT BEDTIME
     Route: 065
  11. CARBAMAZEPINE [Interacting]
     Active Substance: CARBAMAZEPINE
     Indication: Schizoaffective disorder
     Route: 065
  12. METOCLOPRAMIDE [Concomitant]
     Active Substance: METOCLOPRAMIDE
     Indication: Nausea
     Route: 065
  13. LACTULOSE [Suspect]
     Active Substance: LACTULOSE
     Indication: Constipation prophylaxis
     Route: 065
  14. FLUVOXAMINE [Concomitant]
     Active Substance: FLUVOXAMINE
     Indication: Schizoaffective disorder
     Dosage: AFTER INTERACTION INCREASED TO 50MG
     Route: 065
  15. LORAZEPAM [Concomitant]
     Active Substance: LORAZEPAM
     Indication: Schizoaffective disorder
     Route: 065
  16. POLYETHYLENE GLYCOLS [Suspect]
     Active Substance: POLYETHYLENE GLYCOLS
     Indication: Constipation
     Route: 065
  17. VALPROIC ACID [Suspect]
     Active Substance: VALPROIC ACID
     Indication: Schizoaffective disorder
     Route: 065
     Dates: start: 202109

REACTIONS (7)
  - Drug interaction [Unknown]
  - Salivary hypersecretion [Recovered/Resolved]
  - Drug ineffective [Unknown]
  - Ileus paralytic [Recovering/Resolving]
  - Constipation [Recovered/Resolved]
  - Cognitive disorder [Recovering/Resolving]
  - Rebound effect [Recovering/Resolving]

NARRATIVE: CASE EVENT DATE: 20180101
